FAERS Safety Report 21997028 (Version 5)
Quarter: 2023Q2

REPORT INFORMATION
  Report Type: Spontaneous
  Country: US (occurrence: US)
  Receive Date: 20230215
  Receipt Date: 20230616
  Transmission Date: 20230722
  Serious: No
  Sender: FDA-Public Use
  Company Number: US-BEH-2023155360

PATIENT
  Age: 35 Year
  Sex: Female

DRUGS (5)
  1. HUMATE-P [Suspect]
     Active Substance: HUMAN COAGULATION FACTOR VIII/VON WILLEBRAND FACTOR COMPLEX
     Indication: Von Willebrand^s disease
     Dosage: 1000 INTERNATIONAL UNIT, TIW
     Route: 042
     Dates: start: 20211208
  2. HUMATE-P [Suspect]
     Active Substance: HUMAN COAGULATION FACTOR VIII/VON WILLEBRAND FACTOR COMPLEX
     Indication: Prophylaxis
     Dosage: 2000 INTERNATIONAL UNIT, TIW
     Route: 042
     Dates: start: 20211208
  3. HUMATE-P [Suspect]
     Active Substance: HUMAN COAGULATION FACTOR VIII/VON WILLEBRAND FACTOR COMPLEX
     Indication: Intermenstrual bleeding
     Dosage: 3000 INTERNATIONAL UNIT, TIW
     Route: 042
     Dates: start: 20211213
  4. HUMATE-P [Suspect]
     Active Substance: HUMAN COAGULATION FACTOR VIII/VON WILLEBRAND FACTOR COMPLEX
     Dosage: 3000 INTERNATIONAL UNIT, TIW
     Route: 042
     Dates: start: 202112
  5. HUMATE-P [Suspect]
     Active Substance: HUMAN COAGULATION FACTOR VIII/VON WILLEBRAND FACTOR COMPLEX
     Dosage: UNK, PRN
     Route: 042

REACTIONS (8)
  - Gingival bleeding [Unknown]
  - Epistaxis [Unknown]
  - Gingival bleeding [Unknown]
  - Heavy menstrual bleeding [Not Recovered/Not Resolved]
  - Intermenstrual bleeding [Unknown]
  - Gingival bleeding [Recovered/Resolved]
  - Dizziness [Unknown]
  - Menstrual disorder [Recovered/Resolved]

NARRATIVE: CASE EVENT DATE: 20230425
